FAERS Safety Report 10249195 (Version 3)
Quarter: 2014Q4

REPORT INFORMATION
  Report Type: Spontaneous
  Country: US (occurrence: US)
  Receive Date: 20140620
  Receipt Date: 20141017
  Transmission Date: 20150528
  Serious: Yes (Hospitalization, Other)
  Sender: FDA-Public Use
  Company Number: US-BAYER-2014-092619

PATIENT
  Age: 28 Year
  Sex: Female
  Weight: 68 kg

DRUGS (2)
  1. MIRENA [Suspect]
     Active Substance: LEVONORGESTREL
     Indication: CONTRACEPTION
     Dosage: 20 MCG/24HR, CONT
     Route: 015
     Dates: start: 20110926, end: 20130604
  2. ORTHO TRI CYCLEN [Concomitant]
     Active Substance: ETHINYL ESTRADIOL\NORGESTIMATE

REACTIONS (12)
  - Uterine perforation [None]
  - Emotional distress [None]
  - Device breakage [None]
  - Device difficult to use [None]
  - Injury [None]
  - Abdominal pain [None]
  - Pregnancy with contraceptive device [None]
  - Complication of device removal [None]
  - Drug ineffective [None]
  - Scar [None]
  - Flank pain [None]
  - Abortion spontaneous [None]

NARRATIVE: CASE EVENT DATE: 2013
